FAERS Safety Report 25239116 (Version 2)
Quarter: 2025Q2

REPORT INFORMATION
  Report Type: Report from Study
  Country: AR (occurrence: AR)
  Receive Date: 20250425
  Receipt Date: 20250612
  Transmission Date: 20250717
  Serious: Yes (Other)
  Sender: ULTRAGENYX PHARMACEUTICAL
  Company Number: AR-ULTRAGENYX PHARMACEUTICAL INC.-AR-UGX-25-00772

PATIENT
  Age: 14 Year
  Sex: Female

DRUGS (1)
  1. VESTRONIDASE ALFA [Suspect]
     Active Substance: VESTRONIDASE ALFA
     Indication: Mucopolysaccharidosis VII
     Route: 042
     Dates: start: 20230512

REACTIONS (1)
  - Cardiac valve thickening [Not Recovered/Not Resolved]

NARRATIVE: CASE EVENT DATE: 20250325
